FAERS Safety Report 5431252-7 (Version None)
Quarter: 2007Q3

REPORT INFORMATION
  Report Type: 
  Country: None (occurrence: None)
  Receive Date: 20070828
  Receipt Date: 20070816
  Transmission Date: 20080115
  Serious: Yes (Hospitalization)
  Sender: FDA-Public Use
  Company Number: PERIO-2007-0015

PATIENT
  Age: 59 Year
  Sex: Female

DRUGS (1)
  1. PERIOSTAT [Suspect]
     Indication: PERIODONTAL DISEASE
     Dates: start: 20020401

REACTIONS (2)
  - GASTROINTESTINAL INFECTION [None]
  - UPPER RESPIRATORY TRACT INFECTION [None]
